FAERS Safety Report 13769907 (Version 1)
Quarter: 2017Q3

REPORT INFORMATION
  Report Type: Spontaneous
  Country: GB (occurrence: GB)
  Receive Date: 20170719
  Receipt Date: 20170719
  Transmission Date: 20171127
  Serious: Yes (Hospitalization)
  Sender: FDA-Public Use
  Company Number: GB-PFIZER INC-535689

PATIENT
  Age: 43 Year
  Sex: Male
  Weight: 117 kg

DRUGS (6)
  1. ENBREL [Suspect]
     Active Substance: ETANERCEPT
     Indication: PSORIASIS
     Dosage: 50 MG, FREQ: 1 WEEK; INTERVAL: 1
     Route: 058
     Dates: start: 20080515, end: 20091215
  2. WARFARIN [Concomitant]
     Active Substance: WARFARIN
     Indication: PSORIASIS
     Dosage: UNK
  3. LEVOTHYROXINE. [Concomitant]
     Active Substance: LEVOTHYROXINE
     Indication: HYPERTENSION
     Dosage: 25 MG, UNK
     Route: 048
     Dates: start: 20091101
  4. METHOTREXATE SODIUM. [Suspect]
     Active Substance: METHOTREXATE SODIUM
     Indication: PSORIASIS
     Dosage: 2.5-10MG ONCE WEEKLY FOR OVER 5 YEARS.
     Route: 048
     Dates: start: 20091215
  5. CANDESARTAN. [Concomitant]
     Active Substance: CANDESARTAN
     Indication: HYPERTENSION
     Dosage: 8 MG, UNK
     Route: 048
  6. TRAMADOL. [Concomitant]
     Active Substance: TRAMADOL
     Indication: ARTHRITIS
     Dosage: 1000 MG, FREQ: 1 DAY; INTERVAL: 4
     Route: 048

REACTIONS (5)
  - Pneumothorax [Unknown]
  - Thrombosis [Unknown]
  - Pulmonary embolism [Unknown]
  - Liver function test increased [Unknown]
  - Post procedural complication [Unknown]

NARRATIVE: CASE EVENT DATE: 20100109
